FAERS Safety Report 14650730 (Version 1)
Quarter: 2018Q1

REPORT INFORMATION
  Report Type: Spontaneous
  Country: US (occurrence: US)
  Receive Date: 20180316
  Receipt Date: 20180316
  Transmission Date: 20180509
  Serious: No
  Sender: FDA-Public Use
  Company Number: US-PFIZER INC-2018109364

PATIENT
  Age: 64 Year
  Sex: Female

DRUGS (3)
  1. ULTIMATE FLORA PROBIOTIC [Suspect]
     Active Substance: PROBIOTICS NOS
     Indication: PROPHYLAXIS
     Dosage: UNK
  2. LEVOFLOXACIN. [Suspect]
     Active Substance: LEVOFLOXACIN
     Dosage: UNK
  3. ISOSORB MONO ER [Suspect]
     Active Substance: ISOSORBIDE MONONITRATE
     Dosage: 30 MG, UNK

REACTIONS (2)
  - Pain in extremity [None]
  - Muscle spasms [Not Recovered/Not Resolved]
